FAERS Safety Report 8475076 (Version 2)
Quarter: 2012Q4

REPORT INFORMATION
  Report Type: 
  Country: US (occurrence: US)
  Receive Date: 20120323
  Receipt Date: 20121031
  Transmission Date: 20130627
  Serious: Yes (Other)
  Sender: FDA-Public Use
  Company Number: US-ASTRAZENECA-2012SE18588

PATIENT
  Age: 78 Year
  Sex: Male

DRUGS (5)
  1. NEXIUM [Suspect]
     Route: 048
  2. PLAVIX [Concomitant]
  3. ASA [Concomitant]
  4. LIPITOR [Concomitant]
  5. LOSARTAN [Concomitant]

REACTIONS (2)
  - Prostate cancer [Unknown]
  - Diabetes mellitus [Unknown]
